FAERS Safety Report 21866832 (Version 3)
Quarter: 2023Q1

REPORT INFORMATION
  Report Type: Spontaneous
  Country: ES (occurrence: ES)
  Receive Date: 20230116
  Receipt Date: 20230203
  Transmission Date: 20230417
  Serious: Yes (Other)
  Sender: FDA-Public Use
  Company Number: ES-PFIZER INC-PV202300008122

PATIENT
  Age: 52 Year
  Sex: Female
  Weight: 60 kg

DRUGS (7)
  1. IBRANCE [Suspect]
     Active Substance: PALBOCICLIB
     Indication: Breast cancer metastatic
     Dosage: 125 MG, DAILY DAYS 1-21 EACH
  2. IBRANCE [Suspect]
     Active Substance: PALBOCICLIB
     Indication: Hormone receptor positive breast cancer
     Dosage: 100 MG, DAILY
  3. IBRANCE [Suspect]
     Active Substance: PALBOCICLIB
     Dosage: 125 MG, DAILY
     Route: 048
     Dates: start: 20220916
  4. CALCIUM [Concomitant]
     Active Substance: CALCIUM
  5. VITAMIN D3 [Concomitant]
     Active Substance: CHOLECALCIFEROL
     Dosage: 125 MG, DAILY. DAY 1 TO 21, THEN EVERY 28 DAYS.
  6. EXEMESTANE [Concomitant]
     Active Substance: EXEMESTANE
     Indication: Breast cancer metastatic
     Dosage: 25 MG, DAILY
     Dates: start: 20220916
  7. OXYCODONE [Concomitant]
     Active Substance: OXYCODONE
     Indication: Pain
     Dosage: UNK
     Dates: start: 202206, end: 202211

REACTIONS (1)
  - Neutropenia [Recovered/Resolved]
